FAERS Safety Report 8583884-5 (Version None)
Quarter: 2012Q3

REPORT INFORMATION
  Report Type: 
  Country: None (occurrence: None)
  Receive Date: 20120810
  Receipt Date: 20120802
  Transmission Date: 20120928
  Serious: Yes (Disabling)
  Sender: FDA-Public Use
  Company Number: US-009507513-1208USA001876

PATIENT

DRUGS (3)
  1. VICTRELIS [Suspect]
     Indication: HEPATITIS C
  2. PEG-INTRON [Suspect]
  3. RIBASPHERE [Suspect]

REACTIONS (8)
  - MUSCLE SPASMS [None]
  - BEDRIDDEN [None]
  - PHOTOPHOBIA [None]
  - NAUSEA [None]
  - VOMITING [None]
  - MYALGIA [None]
  - FATIGUE [None]
  - HEADACHE [None]
